FAERS Safety Report 11919709 (Version 1)
Quarter: 2016Q1

REPORT INFORMATION
  Report Type: Spontaneous
  Country: US (occurrence: US)
  Receive Date: 20160115
  Receipt Date: 20160115
  Transmission Date: 20160526
  Serious: Yes (Other)
  Sender: FDA-Public Use
  Company Number: US-CIPLA LTD.-2016US00056

PATIENT

DRUGS (3)
  1. CAPECITABINE. [Suspect]
     Active Substance: CAPECITABINE
     Indication: NEOPLASM
     Dosage: 850 MG/M2, BID ON DAYS 1-21 OF EACH 28 DAY CYCLE
     Route: 048
  2. GEMCITABINE [Suspect]
     Active Substance: GEMCITABINE\GEMCITABINE HYDROCHLORIDE
     Indication: NEOPLASM
     Dosage: 1000 MG/M2 OVER 30 MIN ON DAYS 1, 8, 15 OF EACH 28 DAY CYCLE
     Route: 042
  3. VANDETANIB. [Suspect]
     Active Substance: VANDETANIB
     Indication: NEOPLASM
     Dosage: 200 MG, QD
     Route: 048

REACTIONS (1)
  - Palmar-plantar erythrodysaesthesia syndrome [Unknown]
